FAERS Safety Report 8338795-7 (Version None)
Quarter: 2012Q2

REPORT INFORMATION
  Report Type: 
  Country: None (occurrence: None)
  Receive Date: 20120504
  Receipt Date: 20120425
  Transmission Date: 20120825
  Serious: Yes (Hospitalization, Other)
  Sender: FDA-Public Use
  Company Number: CA-ROCHE-GNE323280

PATIENT
  Sex: Female

DRUGS (7)
  1. UNIPHYL [Concomitant]
  2. VENTOLIN [Concomitant]
  3. SYMBICORT [Concomitant]
  4. SPORANOX [Concomitant]
  5. ALVESCO [Concomitant]
  6. XOLAIR [Suspect]
     Indication: ASTHMA
     Route: 058
     Dates: start: 20101221
  7. PREDNISONE TAB [Concomitant]

REACTIONS (3)
  - SOMNOLENCE [None]
  - FATIGUE [None]
  - LUNG INFECTION [None]
